FAERS Safety Report 23748894 (Version 1)
Quarter: 2024Q2

REPORT INFORMATION
  Report Type: Spontaneous
  Country: US (occurrence: US)
  Receive Date: 20240416
  Receipt Date: 20240416
  Transmission Date: 20240716
  Serious: No
  Sender: FDA-Public Use
  Company Number: US-ABBVIE-5716333

PATIENT
  Sex: Female

DRUGS (2)
  1. SYNTHROID [Suspect]
     Active Substance: LEVOTHYROXINE SODIUM
     Indication: Hypothyroidism
     Route: 048
  2. SYNTHROID [Suspect]
     Active Substance: LEVOTHYROXINE SODIUM
     Indication: Hypothyroidism
     Dosage: 50 MCG
     Route: 048

REACTIONS (6)
  - Liver function test abnormal [Unknown]
  - Atrial fibrillation [Unknown]
  - Hypothyroidism [Not Recovered/Not Resolved]
  - Thyroxine increased [Unknown]
  - Liver function test increased [Recovered/Resolved]
  - Drug hypersensitivity [Unknown]
